FAERS Safety Report 7086492-0 (Version None)
Quarter: 2010Q4

REPORT INFORMATION
  Report Type: 
  Country: None (occurrence: None)
  Receive Date: 20101105
  Receipt Date: 20101027
  Transmission Date: 20110411
  Serious: Yes (Death)
  Sender: FDA-Public Use
  Company Number: US-BAUSCH-2010BL006052

PATIENT
  Age: 39 Year
  Sex: Female

DRUGS (2)
  1. ATROPINE SULFATE OPHTHALMIC SOLUTION USP 1% [Suspect]
     Indication: SALIVARY HYPERSECRETION
     Route: 060
     Dates: end: 20101002
  2. ATROPINE SULFATE OPHTHALMIC SOLUTION USP 1% [Suspect]
     Indication: OFF LABEL USE
     Route: 060
     Dates: end: 20101002

REACTIONS (4)
  - ASPIRATION [None]
  - BURNING SENSATION [None]
  - INCORRECT ROUTE OF DRUG ADMINISTRATION [None]
  - PRODUCT DROPPER ISSUE [None]
